FAERS Safety Report 17195669 (Version 4)
Quarter: 2020Q1

REPORT INFORMATION
  Report Type: Spontaneous
  Country: CN (occurrence: CN)
  Receive Date: 20191224
  Receipt Date: 20200210
  Transmission Date: 20200409
  Serious: Yes (Hospitalization, Congenital Anomaly, Other)
  Sender: FDA-Public Use
  Company Number: CN-ROCHE-2502604

PATIENT
  Age: 81 Year
  Sex: Male

DRUGS (2)
  1. ACTILYSE [Suspect]
     Active Substance: ALTEPLASE
     Indication: CEREBRAL INFARCTION
     Route: 042
     Dates: start: 20190512
  2. ASPIRIN [ACETYLSALICYLIC ACID] [Suspect]
     Active Substance: ASPIRIN
     Indication: PRODUCT USED FOR UNKNOWN INDICATION
     Route: 065
     Dates: start: 20190512

REACTIONS (10)
  - Incoherent [Unknown]
  - Off label use [Unknown]
  - Haemorrhage urinary tract [Recovered/Resolved]
  - Speech disorder [Not Recovered/Not Resolved]
  - Product use issue [Unknown]
  - Pneumonia [Unknown]
  - Coma [Not Recovered/Not Resolved]
  - Cerebral haematoma [Unknown]
  - Hemiparesis [Not Recovered/Not Resolved]
  - Mouth haemorrhage [Recovered/Resolved]

NARRATIVE: CASE EVENT DATE: 20190512
